FAERS Safety Report 8949622 (Version 3)
Quarter: 2013Q3

REPORT INFORMATION
  Report Type: Report from Study
  Country: JP (occurrence: JP)
  Receive Date: 20121206
  Receipt Date: 20130703
  Transmission Date: 20140515
  Serious: Yes (Other)
  Sender: FDA-Public Use
  Company Number: JP-VERTEX PHARMACEUTICALS INC.-2012-025650

PATIENT
  Age: 42 Year
  Sex: Male

DRUGS (17)
  1. VX-950 (TELAPREVIR) [Suspect]
     Indication: CHRONIC HEPATITIS C
     Dosage: 2250 MG, QD
     Route: 048
     Dates: start: 20120531
  2. RIBAVIRIN [Suspect]
     Indication: CHRONIC HEPATITIS C
     Dosage: 800 MG, QD
     Route: 048
     Dates: start: 20120531
  3. RIBAVIRIN [Suspect]
     Dosage: 600 MG, QD
     Route: 048
     Dates: start: 20120823, end: 20120830
  4. RIBAVIRIN [Suspect]
     Dosage: 200 MG, QD
     Route: 048
     Dates: start: 20120831, end: 20120912
  5. RIBAVIRIN [Suspect]
     Dosage: 400 MG, QD
     Route: 048
     Dates: start: 20120913, end: 20120919
  6. RIBAVIRIN [Suspect]
     Dosage: 600 MG, QD
     Route: 048
     Dates: start: 20120920
  7. PEGINTERFERON ALFA-2B [Suspect]
     Indication: CHRONIC HEPATITIS C
     Dosage: 1.4 ?G/KG, QW
     Route: 058
     Dates: start: 20120531, end: 20121010
  8. PEGINTERFERON ALFA-2B [Suspect]
     Dosage: 0.8 ?G/KG, QW
     Route: 058
     Dates: start: 20121011, end: 20121017
  9. PEGINTERFERON ALFA-2B [Suspect]
     Dosage: 1.4 ?G/KG, QW
     Route: 058
     Dates: start: 20121018
  10. CALONAL [Concomitant]
     Dosage: 200 MG, QD/PRN
     Route: 048
     Dates: start: 20120531
  11. LENDORMIN [Concomitant]
     Dosage: 0.25 MG, QD/PRN
     Route: 048
     Dates: start: 20120531
  12. LENDORMIN [Concomitant]
     Dosage: 0.25 MG, QD
     Route: 048
  13. COLONEL [Concomitant]
     Dosage: 3000 MG, QD
     Route: 048
     Dates: start: 20120719
  14. IRRIBOW [Concomitant]
     Dosage: 10 MG, QD
     Route: 048
     Dates: start: 20120726
  15. IRRIBOW [Concomitant]
     Dosage: 5 ?G, QD
     Dates: end: 20120822
  16. PRO-BANTHINE [Concomitant]
     Dosage: 30 MG, QD
     Route: 048
     Dates: start: 20120907
  17. LOPEMIN [Concomitant]
     Dosage: 2 MG, QD
     Route: 048
     Dates: start: 20120913

REACTIONS (2)
  - Neutrophil count decreased [Recovered/Resolved]
  - Gastric ulcer [Recovered/Resolved]
